FAERS Safety Report 9383152 (Version 2)
Quarter: 2013Q3

REPORT INFORMATION
  Report Type: Spontaneous
  Country: US (occurrence: US)
  Receive Date: 20130704
  Receipt Date: 20130802
  Transmission Date: 20140515
  Serious: No
  Sender: FDA-Public Use
  Company Number: US-009507513-1307USA002170

PATIENT
  Age: 72 Year
  Sex: Male

DRUGS (2)
  1. COSOPT PF [Suspect]
     Indication: GLAUCOMA
     Dosage: 1 DROP IN AFFECTED EYE TWICE DAILY
     Route: 047
     Dates: start: 20130604
  2. COSOPT PF [Suspect]
     Indication: OPEN ANGLE GLAUCOMA

REACTIONS (9)
  - Eye injury [Unknown]
  - Drug intolerance [Unknown]
  - Eye pain [Unknown]
  - Ocular hyperaemia [Unknown]
  - Drug dose omission [Unknown]
  - Product packaging quantity issue [Unknown]
  - Product dropper issue [Unknown]
  - Product packaging issue [Unknown]
  - Limb injury [Unknown]
